FAERS Safety Report 18199084 (Version 1)
Quarter: 2020Q3

REPORT INFORMATION
  Report Type: Spontaneous
  Country: US (occurrence: US)
  Receive Date: 20200826
  Receipt Date: 20200826
  Transmission Date: 20201103
  Serious: No
  Sender: FDA-Public Use
  Company Number: US-GW PHARMA-202008USGW02881

PATIENT

DRUGS (3)
  1. BANZEL [Interacting]
     Active Substance: RUFINAMIDE
     Dosage: REDUCED DOSE TO HALF ONE MONTH AGO, UNK
     Route: 065
     Dates: start: 202007
  2. EPIDIOLEX [Suspect]
     Active Substance: CANNABIDIOL
     Indication: LENNOX-GASTAUT SYNDROME
     Dosage: 7.27 MG/KG/DAY, 200 MILLIGRAM, BID (STARTED 1 YEAR AGO)
     Route: 048
     Dates: start: 2019
  3. BANZEL [Interacting]
     Active Substance: RUFINAMIDE
     Indication: LENNOX-GASTAUT SYNDROME
     Dosage: INITIAL DOSE, UNK
     Route: 065
     Dates: end: 202007

REACTIONS (3)
  - Mobility decreased [Unknown]
  - Lethargy [Recovering/Resolving]
  - Drug interaction [Unknown]

NARRATIVE: CASE EVENT DATE: 2020
